FAERS Safety Report 15647018 (Version 1)
Quarter: 2018Q4

REPORT INFORMATION
  Report Type: Report from Study
  Country: US (occurrence: US)
  Receive Date: 20181122
  Receipt Date: 20181122
  Transmission Date: 20190205
  Serious: Yes (Other)
  Sender: FDA-Public Use
  Company Number: US-EMD SERONO-9052604

PATIENT
  Sex: Female

DRUGS (1)
  1. REBIF [Suspect]
     Active Substance: INTERFERON BETA-1A
     Indication: MULTIPLE SCLEROSIS
     Route: 058
     Dates: start: 20171215

REACTIONS (4)
  - Headache [Recovering/Resolving]
  - Central nervous system lesion [Unknown]
  - Spinal cord haematoma [Not Recovered/Not Resolved]
  - Influenza like illness [Unknown]
